FAERS Safety Report 6329507-7 (Version None)
Quarter: 2009Q3

REPORT INFORMATION
  Report Type: 
  Country: None (occurrence: None)
  Receive Date: 20090825
  Receipt Date: 20090825
  Transmission Date: 20100115
  Serious: Yes (Hospitalization)
  Sender: FDA-Public Use
  Company Number: None

PATIENT
  Age: 70 Year
  Sex: Female
  Weight: 57.1 kg

DRUGS (6)
  1. TAXOL [Suspect]
     Indication: BREAST CANCER
     Dosage: 80 MG/M2 3XM INTRAVENOUS BOLUS
     Route: 040
     Dates: start: 20090512, end: 20090818
  2. SUTENT [Suspect]
     Indication: BREAST CANCER
     Dosage: 25 MG QD ORAL
     Route: 048
     Dates: start: 20090512, end: 20090820
  3. LEVOTHYROXIDE [Concomitant]
  4. SIMVASTIN [Concomitant]
  5. HYZAAR [Concomitant]
  6. PROPRANOLOL [Concomitant]

REACTIONS (5)
  - ASTHENIA [None]
  - DECREASED APPETITE [None]
  - FATIGUE [None]
  - HEPATIC ENZYME INCREASED [None]
  - HYPERBILIRUBINAEMIA [None]
